FAERS Safety Report 6312176-X (Version None)
Quarter: 2009Q3

REPORT INFORMATION
  Report Type: 
  Country: None (occurrence: None)
  Receive Date: 20090817
  Receipt Date: 20090810
  Transmission Date: 20100115
  Serious: Yes (Other)
  Sender: FDA-Public Use
  Company Number: CA-ABBOTT-09P-028-0590291-00

PATIENT
  Sex: Male

DRUGS (3)
  1. LUPRON DEPOT [Suspect]
     Indication: PROSTATE CANCER
     Dosage: 22.5 MG -3 MONTH DEPOT
     Dates: start: 20090616
  2. CASODEX [Concomitant]
     Indication: DRUG USE FOR UNKNOWN INDICATION
  3. DEXAMETHASONE [Concomitant]
     Indication: DRUG USE FOR UNKNOWN INDICATION

REACTIONS (6)
  - BRAIN NEOPLASM [None]
  - DECREASED APPETITE [None]
  - EAR PAIN [None]
  - FATIGUE [None]
  - PRURITUS [None]
  - SWELLING FACE [None]
